FAERS Safety Report 6120362-7 (Version None)
Quarter: 2009Q1

REPORT INFORMATION
  Report Type: 
  Country: None (occurrence: None)
  Receive Date: 20090313
  Receipt Date: 20090313
  Transmission Date: 20090719
  Serious: No
  Sender: FDA-Public Use
  Company Number: None

PATIENT
  Age: 6 Month
  Sex: Male
  Weight: 9.0719 kg

DRUGS (1)
  1. AMOXICILLIN AND CLAVULANATE POTASSIUM [Suspect]
     Indication: EAR INFECTION
     Dosage: 1 TEASPOON 3 TIMES A DAY PO
     Route: 048
     Dates: start: 20090310, end: 20090312

REACTIONS (7)
  - ABNORMAL BEHAVIOUR [None]
  - CONDITION AGGRAVATED [None]
  - DIARRHOEA [None]
  - DRUG DISPENSING ERROR [None]
  - MEDICATION ERROR [None]
  - SWELLING FACE [None]
  - WRONG DRUG ADMINISTERED [None]
